FAERS Safety Report 26162411 (Version 1)
Quarter: 2025Q4

REPORT INFORMATION
  Report Type: Spontaneous
  Country: EU (occurrence: EU)
  Receive Date: 20251216
  Receipt Date: 20251216
  Transmission Date: 20260118
  Serious: Yes (Hospitalization, Other)
  Sender: ADC THERAPEUTICS
  Company Number: EU-BIOVITRUM-2025-IT-017218

PATIENT
  Sex: Female

DRUGS (2)
  1. ZYNLONTA [Suspect]
     Active Substance: LONCASTUXIMAB TESIRINE-LPYL
     Indication: Product used for unknown indication
     Dosage: UNK
  2. ZYNLONTA [Suspect]
     Active Substance: LONCASTUXIMAB TESIRINE-LPYL
     Dosage: UNK
     Dates: start: 20251023, end: 20251023

REACTIONS (3)
  - Pancytopenia [Unknown]
  - Pleural effusion [Unknown]
  - COVID-19 [Unknown]
